FAERS Safety Report 10166930 (Version 2)
Quarter: 2014Q2

REPORT INFORMATION
  Report Type: Spontaneous
  Country: US (occurrence: None)
  Receive Date: 20140508
  Receipt Date: 20140616
  Transmission Date: 20141212
  Serious: Yes (Hospitalization)
  Sender: FDA-Public Use
  Company Number: UTC-048197

PATIENT
  Age: 43 Year
  Sex: Female
  Weight: 93.9 kg

DRUGS (2)
  1. TYVASO (TREPROSTINIL SODIUM (INHALED)) INHALATION GAS, 0.6 MG/ML [Suspect]
     Indication: COR PULMONALE CHRONIC
     Route: 055
     Dates: start: 20100113
  2. REVATIO (SILDENAFIL CITRATE) [Concomitant]

REACTIONS (2)
  - Systemic lupus erythematosus [None]
  - Condition aggravated [None]
